FAERS Safety Report 4804439-1 (Version None)
Quarter: 2005Q4

REPORT INFORMATION
  Report Type: 
  Country: None (occurrence: None)
  Receive Date: 20051020
  Receipt Date: 20051015
  Transmission Date: 20060501
  Serious: Yes (Hospitalization, Disabling, Other)
  Sender: FDA-Public Use
  Company Number: GB-GLAXOSMITHKLINE-B0397367A

PATIENT
  Age: 35 Year
  Sex: Female
  Weight: 50.91 kg

DRUGS (2)
  1. ZYBAN [Suspect]
     Indication: SMOKER
     Dosage: 150MG TWICE PER DAY
     Route: 048
     Dates: start: 20030523, end: 20030714
  2. CHLORPHENIRAMINE MALEATE [Concomitant]
     Route: 065
     Dates: start: 20030714

REACTIONS (2)
  - HEPATITIS [None]
  - HEPATOMEGALY [None]
